FAERS Safety Report 9013692 (Version 3)
Quarter: 2014Q2

REPORT INFORMATION
  Report Type: Report from Study
  Country: CN (occurrence: CN)
  Receive Date: 20130115
  Receipt Date: 20140512
  Transmission Date: 20141212
  Serious: Yes (Death)
  Sender: FDA-Public Use
  Company Number: PHHY2013CN002628

PATIENT
  Age: 64 Year
  Sex: Female

DRUGS (4)
  1. GLIVEC [Suspect]
     Indication: GASTROINTESTINAL STROMAL TUMOUR
     Dosage: 600 MG, QD
     Route: 048
     Dates: start: 20070710
  2. GLIVEC [Suspect]
     Indication: GASTROINTESTINAL NEOPLASM
  3. ANALGESICS [Concomitant]
     Indication: PAIN
     Dosage: UNK UKN, UNK
     Route: 048
     Dates: start: 20130104, end: 20130104
  4. MORPHINE [Concomitant]
     Indication: PAIN
     Dosage: UNK UKN, UNK
     Route: 065
     Dates: start: 20130104, end: 20130104

REACTIONS (1)
  - Death [Fatal]
